FAERS Safety Report 13346400 (Version 3)
Quarter: 2017Q3

REPORT INFORMATION
  Report Type: Report from Study
  Country: DE (occurrence: DE)
  Receive Date: 20170317
  Receipt Date: 20170728
  Transmission Date: 20171127
  Serious: Yes (Life-Threatening)
  Sender: FDA-Public Use
  Company Number: DE-ROCHE-1891753

PATIENT
  Age: 72 Year
  Sex: Female
  Weight: 78 kg

DRUGS (48)
  1. CYCLOPHOSPHAMIDE. [Suspect]
     Active Substance: CYCLOPHOSPHAMIDE
     Route: 042
     Dates: start: 20140805, end: 20140805
  2. FLUDARABINE [Suspect]
     Active Substance: FLUDARABINE PHOSPHATE
     Route: 042
     Dates: start: 20140602, end: 20140602
  3. SIMVASTATIN. [Concomitant]
     Active Substance: SIMVASTATIN
     Route: 048
     Dates: start: 2013
  4. FLUCONAZOL [Concomitant]
     Active Substance: FLUCONAZOLE
     Route: 048
     Dates: start: 20140922, end: 20140928
  5. CYCLOPHOSPHAMIDE. [Suspect]
     Active Substance: CYCLOPHOSPHAMIDE
     Route: 042
     Dates: start: 20140602, end: 20140602
  6. FLUDARABINE [Suspect]
     Active Substance: FLUDARABINE PHOSPHATE
     Route: 042
     Dates: start: 20140506, end: 20140506
  7. FLUDARABINE [Suspect]
     Active Substance: FLUDARABINE PHOSPHATE
     Route: 042
     Dates: start: 20140603, end: 20140603
  8. FLUDARABINE [Suspect]
     Active Substance: FLUDARABINE PHOSPHATE
     Route: 042
     Dates: start: 20140707, end: 20140707
  9. FLUDARABINE [Suspect]
     Active Substance: FLUDARABINE PHOSPHATE
     Route: 042
     Dates: start: 20140708, end: 20140708
  10. APIDRA [Concomitant]
     Active Substance: INSULIN GLULISINE
     Route: 058
     Dates: start: 1997
  11. OXYGEN. [Concomitant]
     Active Substance: OXYGEN
     Dosage: SINGLE DOSE
     Route: 050
     Dates: start: 20140505, end: 20140505
  12. ADRENALIN [Concomitant]
     Active Substance: EPINEPHRINE
     Dosage: 5 VIALS, SINGLE DOSE
     Route: 050
     Dates: start: 20140505, end: 20140505
  13. LAXOBERAL [Concomitant]
     Active Substance: SODIUM PICOSULFATE
     Dosage: DROPS
     Route: 048
     Dates: start: 20140508
  14. OBINUTUZUMAB. [Suspect]
     Active Substance: OBINUTUZUMAB
     Route: 042
     Dates: start: 20140506, end: 20140506
  15. OBINUTUZUMAB. [Suspect]
     Active Substance: OBINUTUZUMAB
     Route: 042
     Dates: start: 20140512, end: 20140512
  16. OBINUTUZUMAB. [Suspect]
     Active Substance: OBINUTUZUMAB
     Route: 042
     Dates: start: 20140707, end: 20140707
  17. CYCLOPHOSPHAMIDE. [Suspect]
     Active Substance: CYCLOPHOSPHAMIDE
     Route: 042
     Dates: start: 20140708, end: 20140708
  18. CYCLOPHOSPHAMIDE. [Suspect]
     Active Substance: CYCLOPHOSPHAMIDE
     Route: 042
     Dates: start: 20140804, end: 20140804
  19. CLONISTADA [Concomitant]
     Route: 048
     Dates: start: 1994
  20. CODIOVAN [Concomitant]
     Active Substance: HYDROCHLOROTHIAZIDE\VALSARTAN
     Route: 048
     Dates: start: 1994
  21. SIMBICORT [Concomitant]
     Active Substance: BUDESONIDE\FORMOTEROL FUMARATE
     Dosage: 4 PUFFS
     Route: 045
     Dates: start: 1994
  22. OBINUTUZUMAB. [Suspect]
     Active Substance: OBINUTUZUMAB
     Indication: CHRONIC LYMPHOCYTIC LEUKAEMIA
     Dosage: DATE OF LAST DOSE PRIOR TO SAE: 01/SEP/2014. VIALS
     Route: 042
     Dates: start: 20140505, end: 20140505
  23. OBINUTUZUMAB. [Suspect]
     Active Substance: OBINUTUZUMAB
     Route: 042
     Dates: start: 20140602, end: 20140602
  24. CYCLOPHOSPHAMIDE. [Suspect]
     Active Substance: CYCLOPHOSPHAMIDE
     Route: 042
     Dates: start: 20140506, end: 20140506
  25. CYCLOPHOSPHAMIDE. [Suspect]
     Active Substance: CYCLOPHOSPHAMIDE
     Route: 042
     Dates: start: 20140707, end: 20140707
  26. FLUDARABINE [Suspect]
     Active Substance: FLUDARABINE PHOSPHATE
     Route: 042
     Dates: start: 20140902, end: 20140902
  27. DEXA-GENTAMICIN (GERMANY) [Concomitant]
     Route: 065
     Dates: start: 20140811, end: 20140830
  28. MOXIFLOXACIN. [Concomitant]
     Active Substance: MOXIFLOXACIN
     Route: 048
     Dates: start: 20140922, end: 20140928
  29. GELOMYRTOL [Concomitant]
     Route: 048
     Dates: start: 20140912, end: 20140921
  30. FLUDARABINE [Suspect]
     Active Substance: FLUDARABINE PHOSPHATE
     Indication: CHRONIC LYMPHOCYTIC LEUKAEMIA
     Dosage: DOSE ON 05/MAY/2014 42 MG?DATE OF LAST DOSE PRIOR TO SAE: 02/SEP/2014
     Route: 042
     Dates: start: 20140505, end: 20140505
  31. SOLU-DECORTIN [Concomitant]
     Active Substance: PREDNISOLONE SODIUM SUCCINATE
     Dosage: SINGLE DOSE
     Route: 042
     Dates: start: 20140505, end: 20140505
  32. PREDNISOLON [Concomitant]
     Active Substance: PREDNISOLONE
     Indication: PROPHYLAXIS
     Route: 042
     Dates: start: 20140505
  33. PARACETAMOL [Concomitant]
     Active Substance: ACETAMINOPHEN
     Indication: PROPHYLAXIS
     Route: 048
     Dates: start: 20140505
  34. OBINUTUZUMAB. [Suspect]
     Active Substance: OBINUTUZUMAB
     Route: 042
     Dates: start: 20140519, end: 20140519
  35. OBINUTUZUMAB. [Suspect]
     Active Substance: OBINUTUZUMAB
     Route: 042
     Dates: start: 20140804, end: 20140804
  36. FLUDARABINE [Suspect]
     Active Substance: FLUDARABINE PHOSPHATE
     Route: 042
     Dates: start: 20140805, end: 20140805
  37. IBRUTINIB [Suspect]
     Active Substance: IBRUTINIB
     Indication: PRODUCT USED FOR UNKNOWN INDICATION
     Route: 065
     Dates: start: 20160928
  38. CYCLOPHOSPHAMIDE. [Suspect]
     Active Substance: CYCLOPHOSPHAMIDE
     Route: 042
     Dates: start: 20140603, end: 20140603
  39. FLUDARABINE [Suspect]
     Active Substance: FLUDARABINE PHOSPHATE
     Route: 042
     Dates: start: 20140901, end: 20140901
  40. LANTUS [Concomitant]
     Active Substance: INSULIN GLARGINE
     Route: 058
     Dates: start: 1997
  41. DOLANTIN [Concomitant]
     Active Substance: MEPERIDINE
     Dosage: SINGLE DOSE
     Route: 042
     Dates: start: 20140505, end: 20140505
  42. TAVEGIL [Concomitant]
     Active Substance: CLEMASTINE FUMARATE
     Indication: PROPHYLAXIS
     Route: 042
     Dates: start: 20140505
  43. KEVATRIL [Concomitant]
     Active Substance: GRANISETRON HYDROCHLORIDE
     Indication: PROPHYLAXIS
     Route: 042
     Dates: start: 20140505
  44. OBINUTUZUMAB. [Suspect]
     Active Substance: OBINUTUZUMAB
     Route: 042
     Dates: start: 20140901, end: 20140901
  45. CYCLOPHOSPHAMIDE. [Suspect]
     Active Substance: CYCLOPHOSPHAMIDE
     Indication: CHRONIC LYMPHOCYTIC LEUKAEMIA
     Dosage: DOSE ON 05/MAY/2014, 423 MG?DATE OF LAST DOSE PRIOR TO SAE: 02/SEP/2014
     Route: 042
     Dates: start: 20140505, end: 20140505
  46. CYCLOPHOSPHAMIDE. [Suspect]
     Active Substance: CYCLOPHOSPHAMIDE
     Route: 042
     Dates: start: 20140901, end: 20140901
  47. CYCLOPHOSPHAMIDE. [Suspect]
     Active Substance: CYCLOPHOSPHAMIDE
     Route: 042
     Dates: start: 20140902, end: 20140902
  48. FLUDARABINE [Suspect]
     Active Substance: FLUDARABINE PHOSPHATE
     Route: 042
     Dates: start: 20140804, end: 20140804

REACTIONS (1)
  - Squamous cell carcinoma [Not Recovered/Not Resolved]

NARRATIVE: CASE EVENT DATE: 20161006
